FAERS Safety Report 16692920 (Version 1)
Quarter: 2019Q3

REPORT INFORMATION
  Report Type: Spontaneous
  Country: DE (occurrence: DE)
  Receive Date: 20190812
  Receipt Date: 20190812
  Transmission Date: 20191004
  Serious: Yes (Other)
  Sender: FDA-Public Use
  Company Number: DE-EMD SERONO-9110019

PATIENT
  Age: 0 Day
  Sex: Male

DRUGS (1)
  1. MAVENCLAD [Suspect]
     Active Substance: CLADRIBINE
     Indication: MULTIPLE SCLEROSIS
     Route: 050

REACTIONS (2)
  - Postmature baby [Recovered/Resolved]
  - Exposure via father [Recovered/Resolved]

NARRATIVE: CASE EVENT DATE: 20190403
